FAERS Safety Report 5353572-7 (Version None)
Quarter: 2007Q2

REPORT INFORMATION
  Report Type: 
  Country: None (occurrence: None)
  Receive Date: 20070608
  Receipt Date: 20070531
  Transmission Date: 20071010
  Serious: Yes (Disabling)
  Sender: FDA-Public Use
  Company Number: GXKR2007GB04760

PATIENT
  Age: 31 Year
  Sex: Female
  Weight: 109 kg

DRUGS (2)
  1. LABETALOL (NGX) (LABETALOL) UNKNOWN [Suspect]
     Indication: PREGNANCY INDUCED HYPERTENSION
     Dosage: 200 MG, BID, ORAL
     Route: 048
     Dates: start: 20061124, end: 20061204
  2. FERROUS SULFATE TAB [Concomitant]

REACTIONS (4)
  - BREAST DISCHARGE [None]
  - BREAST PAIN [None]
  - DRUG EXPOSURE DURING PREGNANCY [None]
  - MIDDLE INSOMNIA [None]
